FAERS Safety Report 24328616 (Version 2)
Quarter: 2024Q3

REPORT INFORMATION
  Report Type: Spontaneous
  Country: CN (occurrence: CN)
  Receive Date: 20240917
  Receipt Date: 20240924
  Transmission Date: 20241017
  Serious: Yes (Other)
  Sender: ROCHE
  Company Number: CN-ROCHE-10000081198

PATIENT
  Age: 63 Year

DRUGS (4)
  1. BEVACIZUMAB [Suspect]
     Active Substance: BEVACIZUMAB
     Indication: Lung adenocarcinoma
     Route: 065
  2. CAMRELIZUMAB [Suspect]
     Active Substance: CAMRELIZUMAB
     Indication: Lung adenocarcinoma
     Route: 065
  3. PEMETREXED [Concomitant]
     Active Substance: PEMETREXED
  4. CARBOPLATIN [Concomitant]
     Active Substance: CARBOPLATIN

REACTIONS (1)
  - Drug-induced liver injury [Recovered/Resolved]
